FAERS Safety Report 10361788 (Version 2)
Quarter: 2014Q3

REPORT INFORMATION
  Report Type: Spontaneous
  Country: US (occurrence: US)
  Receive Date: 20140805
  Receipt Date: 20140805
  Transmission Date: 20150326
  Serious: Yes (Other)
  Sender: FDA-Public Use
  Company Number: US-JNJCP-30000232685

PATIENT
  Sex: Female

DRUGS (1)
  1. NEUTROGENA PRODUCTS [Suspect]
     Active Substance: UNSPECIFIED INGREDIENT
     Indication: PROPHYLAXIS
     Route: 061

REACTIONS (1)
  - Asthma [Unknown]
